FAERS Safety Report 10183762 (Version 1)
Quarter: 2014Q2

REPORT INFORMATION
  Report Type: Spontaneous
  Country: CH (occurrence: CH)
  Receive Date: 20140520
  Receipt Date: 20140520
  Transmission Date: 20141212
  Serious: Yes (Other)
  Sender: FDA-Public Use
  Company Number: PHHY2014CH057561

PATIENT
  Age: 53 Year
  Sex: Female

DRUGS (1)
  1. FLUOXETINE [Suspect]

REACTIONS (2)
  - Psychotic disorder [Unknown]
  - Mania [Unknown]
